FAERS Safety Report 6877705-6 (Version None)
Quarter: 2010Q3

REPORT INFORMATION
  Report Type: 
  Country: None (occurrence: None)
  Receive Date: 20100727
  Receipt Date: 20100614
  Transmission Date: 20110219
  Serious: No
  Sender: FDA-Public Use
  Company Number: US-ABBOTT-10P-163-0652629-00

PATIENT
  Sex: Female

DRUGS (3)
  1. SYNTHROID [Suspect]
     Indication: HYPOTHYROIDISM
     Route: 048
     Dates: start: 20001201, end: 20010101
  2. SYNTHROID [Suspect]
     Route: 048
     Dates: start: 19990601, end: 20001201
  3. SYNTHROID [Suspect]
     Route: 048
     Dates: start: 19990301, end: 19990601

REACTIONS (4)
  - BRONCHITIS [None]
  - CONSTIPATION [None]
  - FATIGUE [None]
  - RESPIRATORY TRACT INFECTION [None]
